FAERS Safety Report 4525199-8 (Version None)
Quarter: 2004Q4

REPORT INFORMATION
  Report Type: 
  Country: None (occurrence: None)
  Receive Date: 20041213
  Receipt Date: 20041102
  Transmission Date: 20050328
  Serious: Yes (Disabling)
  Sender: FDA-Public Use
  Company Number: US-MERCK-0411USA00385

PATIENT
  Age: 53 Year
  Sex: Female

DRUGS (5)
  1. VIOXX [Suspect]
     Indication: KNEE OPERATION
     Route: 048
     Dates: start: 20040921, end: 20040926
  2. VIOXX [Suspect]
     Route: 048
     Dates: start: 20040927, end: 20040101
  3. LIPITOR [Concomitant]
     Route: 065
  4. AVANDIA [Concomitant]
     Route: 065
  5. BEXTRA [Concomitant]
     Route: 065

REACTIONS (2)
  - CHEST PAIN [None]
  - INSOMNIA [None]
